FAERS Safety Report 7036594-X (Version None)
Quarter: 2010Q4

REPORT INFORMATION
  Report Type: 
  Country: None (occurrence: None)
  Receive Date: 20101011
  Receipt Date: 20100930
  Transmission Date: 20110411
  Serious: No
  Sender: FDA-Public Use
  Company Number: US-BIOGENIDEC-2010BI034477

PATIENT
  Age: 36 Year
  Sex: Female

DRUGS (1)
  1. TYSABRI [Suspect]
     Indication: MULTIPLE SCLEROSIS
     Route: 042
     Dates: start: 20090421

REACTIONS (5)
  - DEPRESSED MOOD [None]
  - INFUSION RELATED REACTION [None]
  - MEMORY IMPAIRMENT [None]
  - VEIN DISORDER [None]
  - VEIN PAIN [None]
